FAERS Safety Report 5407135-5 (Version None)
Quarter: 2007Q3

REPORT INFORMATION
  Report Type: 
  Country: None (occurrence: None)
  Receive Date: 20070803
  Receipt Date: 20070803
  Transmission Date: 20080115
  Serious: Yes (Hospitalization)
  Sender: FDA-Public Use
  Company Number: None

PATIENT
  Sex: Male
  Weight: 12.8 kg

DRUGS (6)
  1. DAUNORUBICIN HCL [Suspect]
     Dosage: 28 MG
  2. DEXAMETHASONE 0.5MG TAB [Suspect]
     Dosage: 28 MG
  3. METHOTREXATE [Suspect]
     Dosage: 10 MG
  4. PEG-L-ASPARAGINASE (K-H) [Suspect]
     Dosage: 1375 UNIT
  5. VINCRISTINE SULFATE [Suspect]
     Dosage: 1.6 MG
  6. CYTARABINE [Suspect]
     Dosage: 50 MG

REACTIONS (6)
  - CARDIAC DISORDER [None]
  - HYPOTENSION [None]
  - LETHARGY [None]
  - PULMONARY HAEMORRHAGE [None]
  - SHOCK [None]
  - VOMITING [None]
